FAERS Safety Report 9307866 (Version 5)
Quarter: 2013Q2

REPORT INFORMATION
  Report Type: Report from Study
  Country: MY (occurrence: MY)
  Receive Date: 20130524
  Receipt Date: 20130618
  Transmission Date: 20140414
  Serious: Yes (Death)
  Sender: FDA-Public Use
  Company Number: MY-ROCHE-1225645

PATIENT
  Age: 52 Year
  Sex: Female
  Weight: 72 kg

DRUGS (9)
  1. TOCILIZUMAB [Suspect]
     Indication: RHEUMATOID ARTHRITIS
     Dosage: DOSE OF LAST OPEN LABEL STUDY DRUG TAKEN : 162 MG, DATE OF MOST RECENT DOSE: 09 MAY 2013
     Route: 058
     Dates: start: 20120418
  2. BLINDED TOCILIZUMAB [Suspect]
     Indication: RHEUMATOID ARTHRITIS
     Dosage: DATE OF MOST RECENT DOSE OF BLINDED TOCILIZUMAB: 04/APR/2012
     Route: 058
     Dates: start: 20111102, end: 20120404
  3. METHOTREXATE [Concomitant]
     Indication: RHEUMATOID ARTHRITIS
     Route: 048
     Dates: start: 200611
  4. PREDNISOLONE [Concomitant]
     Indication: RHEUMATOID ARTHRITIS
     Route: 048
     Dates: start: 200611, end: 201109
  5. SULFASALAZINE [Concomitant]
     Indication: RHEUMATOID ARTHRITIS
     Route: 048
     Dates: start: 201010
  6. PERINDOPRIL [Concomitant]
     Route: 048
     Dates: start: 200809
  7. ATORVASTATIN [Concomitant]
     Route: 048
     Dates: start: 200809
  8. METFORMIN [Concomitant]
     Route: 048
     Dates: start: 200809
  9. FOLIC ACID [Concomitant]
     Route: 048
     Dates: start: 2006

REACTIONS (1)
  - Intraductal papilloma of breast [Fatal]
